FAERS Safety Report 23293736 (Version 2)
Quarter: 2024Q1

REPORT INFORMATION
  Report Type: Spontaneous
  Country: JP (occurrence: None)
  Receive Date: 20231213
  Receipt Date: 20240130
  Transmission Date: 20240410
  Serious: No
  Sender: FDA-Public Use
  Company Number: 2022A416875

PATIENT
  Age: 18 Year
  Sex: Female

DRUGS (6)
  1. KOSELUGO [Suspect]
     Active Substance: SELUMETINIB
     Indication: Neurofibromatosis
     Route: 048
     Dates: start: 20221214, end: 20221228
  2. KOSELUGO [Suspect]
     Active Substance: SELUMETINIB
     Indication: Neurofibromatosis
     Route: 048
     Dates: start: 20230104
  3. DAYVIGO [Concomitant]
     Active Substance: LEMBOREXANT
     Indication: Insomnia
     Dosage: BEFORE BEDTIME
     Route: 048
     Dates: start: 20210922
  4. ETHYL LOFLAZEPATE [Concomitant]
     Active Substance: ETHYL LOFLAZEPATE
     Indication: Anxiety
     Dosage: BEFORE BEDTIME
     Route: 048
     Dates: start: 20211124
  5. LORAZEPAM [Concomitant]
     Active Substance: LORAZEPAM
     Indication: Anxiety
     Dosage: AFTER EACH MEALS
     Route: 048
     Dates: start: 20210908
  6. HALCION [Concomitant]
     Active Substance: TRIAZOLAM
     Indication: Insomnia
     Dosage: AS REQUIRED, TAKEN WHEN AWAKENING IN THE MIDDLE OF THE NIGHT0.25MG AS REQUIRED
     Route: 048
     Dates: start: 20210908

REACTIONS (10)
  - Malaise [Recovered/Resolved]
  - Skin laceration [Recovered/Resolved]
  - Dermatitis [Not Recovered/Not Resolved]
  - Nausea [Recovered/Resolved]
  - Dermatitis acneiform [Recovered/Resolved]
  - Alopecia [Recovered/Resolved]
  - Vision blurred [Not Recovered/Not Resolved]
  - Visual acuity reduced [Recovered/Resolved]
  - Paronychia [Recovered/Resolved]
  - Constipation [Recovered/Resolved]

NARRATIVE: CASE EVENT DATE: 20221214
